FAERS Safety Report 21002413 (Version 2)
Quarter: 2022Q2

REPORT INFORMATION
  Report Type: Spontaneous
  Country: AU (occurrence: AU)
  Receive Date: 20220624
  Receipt Date: 20220629
  Transmission Date: 20220721
  Serious: Yes (Other)
  Sender: FDA-Public Use
  Company Number: AU-ASTELLAS-2022US022600

PATIENT
  Age: 5 Year
  Sex: Male

DRUGS (1)
  1. AMPHOTERICIN B [Suspect]
     Active Substance: AMPHOTERICIN B
     Indication: Central nervous system infection
     Dosage: UNK, UNKNOWN FREQ.
     Route: 065

REACTIONS (1)
  - Disease progression [Unknown]
